FAERS Safety Report 5303574-1 (Version None)
Quarter: 2007Q2

REPORT INFORMATION
  Report Type: 
  Country: None (occurrence: None)
  Receive Date: 20070420
  Receipt Date: 20070412
  Transmission Date: 20071010
  Serious: Yes (Hospitalization)
  Sender: FDA-Public Use
  Company Number: FR-PFIZER INC-2007029132

PATIENT
  Sex: Female

DRUGS (3)
  1. ZOLOFT [Suspect]
     Route: 048
  2. ATARAX [Suspect]
     Route: 048
  3. ALPRAZOLAM [Concomitant]

REACTIONS (3)
  - DRUG EXPOSURE DURING PREGNANCY [None]
  - FOETAL DISTRESS SYNDROME [None]
  - PLACENTAL DISORDER [None]
